FAERS Safety Report 4953280-8 (Version None)
Quarter: 2006Q1

REPORT INFORMATION
  Report Type: 
  Country: None (occurrence: None)
  Receive Date: 20060324
  Receipt Date: 20050414
  Transmission Date: 20060701
  Serious: Yes (Hospitalization, Other)
  Sender: FDA-Public Use
  Company Number: US-MERCK-0504USA02572

PATIENT
  Age: 50 Year
  Sex: Male
  Weight: 84 kg

DRUGS (2)
  1. VIOXX [Suspect]
     Indication: ARTHRITIS
     Route: 048
     Dates: start: 20020101, end: 20040101
  2. PROZAC [Concomitant]
     Route: 065

REACTIONS (4)
  - ARTERIAL OCCLUSIVE DISEASE [None]
  - CARDIAC DISORDER [None]
  - GASTROOESOPHAGEAL REFLUX DISEASE [None]
  - HEART RATE DECREASED [None]
